FAERS Safety Report 7183871-8 (Version None)
Quarter: 2010Q4

REPORT INFORMATION
  Report Type: 
  Country: None (occurrence: None)
  Receive Date: 20101222
  Receipt Date: 20101208
  Transmission Date: 20110411
  Serious: Yes (Other)
  Sender: FDA-Public Use
  Company Number: US-ROCHE-727279

PATIENT
  Sex: Male
  Weight: 47.6 kg

DRUGS (4)
  1. ACCUTANE [Suspect]
     Indication: ACNE
     Route: 048
     Dates: start: 20070201, end: 20070328
  2. ACCUTANE [Suspect]
     Route: 048
     Dates: start: 20070329, end: 20070817
  3. AMNESTEEM [Suspect]
     Route: 065
     Dates: start: 20070301
  4. MOTRIN [Concomitant]
     Dosage: SIX DAILY

REACTIONS (14)
  - ANAEMIA [None]
  - ARTHRALGIA [None]
  - ARTHRITIS [None]
  - ARTHRITIS ENTEROPATHIC [None]
  - BACK PAIN [None]
  - CROHN'S DISEASE [None]
  - DEPRESSION [None]
  - GASTROINTESTINAL INJURY [None]
  - INFLAMMATORY BOWEL DISEASE [None]
  - NECK PAIN [None]
  - PAIN IN EXTREMITY [None]
  - RHEUMATOID ARTHRITIS [None]
  - SYSTEMIC INFLAMMATORY RESPONSE SYNDROME [None]
  - VISION BLURRED [None]
